FAERS Safety Report 16658445 (Version 1)
Quarter: 2019Q3

REPORT INFORMATION
  Report Type: Report from Study
  Country: BR (occurrence: BR)
  Receive Date: 20190801
  Receipt Date: 20190801
  Transmission Date: 20191004
  Serious: Yes (Other)
  Sender: FDA-Public Use
  Company Number: PHHY2019BR053163

PATIENT
  Age: 34 Year
  Sex: Male
  Weight: 148 kg

DRUGS (10)
  1. COSENTYX [Suspect]
     Active Substance: SECUKINUMAB
     Dosage: 300 MG, QW
     Route: 058
     Dates: start: 20190118
  2. COSENTYX [Suspect]
     Active Substance: SECUKINUMAB
     Dosage: UNK UNK, QW
     Route: 058
     Dates: start: 20190703
  3. AZITHROMYCIN DIHYDRATE. [Suspect]
     Active Substance: AZITHROMYCIN DIHYDRATE
     Indication: PNEUMONIA
     Route: 065
  4. COSENTYX [Suspect]
     Active Substance: SECUKINUMAB
     Dosage: UNK (EVERY 15 DAYS)
     Route: 065
     Dates: start: 20190203
  5. COSENTYX [Suspect]
     Active Substance: SECUKINUMAB
     Indication: PSORIASIS
     Dosage: 300 MG, QW
     Route: 058
     Dates: start: 20181221
  6. COSENTYX [Suspect]
     Active Substance: SECUKINUMAB
     Dosage: UNK (EVERY 15 DAYS)
     Route: 065
     Dates: start: 20190228
  7. COSENTYX [Suspect]
     Active Substance: SECUKINUMAB
     Dosage: 300 MG, QW
     Route: 058
     Dates: start: 20190111
  8. COSENTYX [Suspect]
     Active Substance: SECUKINUMAB
     Dosage: UNK (EVERY 15 DAYS)
     Route: 065
     Dates: start: 20190218
  9. COSENTYX [Suspect]
     Active Substance: SECUKINUMAB
     Dosage: 300 MG, QW
     Route: 058
     Dates: start: 20181228
  10. COSENTYX [Suspect]
     Active Substance: SECUKINUMAB
     Dosage: 300 MG, QW
     Route: 058
     Dates: start: 20190104

REACTIONS (7)
  - Pruritus [Unknown]
  - Acne [Unknown]
  - Injection site pain [Unknown]
  - Inappropriate schedule of product administration [Not Recovered/Not Resolved]
  - Pneumonia [Unknown]
  - Extra dose administered [Unknown]
  - Injection site bruising [Unknown]

NARRATIVE: CASE EVENT DATE: 20190203
